FAERS Safety Report 4512840-9 (Version None)
Quarter: 2004Q4

REPORT INFORMATION
  Report Type: 
  Country: None (occurrence: None)
  Receive Date: 20041119
  Receipt Date: 20041119
  Transmission Date: 20050328
  Serious: Yes (Other)
  Sender: FDA-Public Use
  Company Number: None

PATIENT
  Sex: Male
  Weight: 114.76 kg

DRUGS (2)
  1. DEXTRO AMPHETAMINE SULFATE TAB [Suspect]
     Indication: ATTENTION DEFICIT/HYPERACTIVITY DISORDER
     Dosage: 15 MG SPANSULE Q.A.M.
     Dates: start: 20011212, end: 20020822
  2. DEXTRO AMPHETAMINE SULFATE TAB [Suspect]
     Dosage: 10 MG SPANSULE Q. NOON
     Dates: start: 20011212, end: 20020822

REACTIONS (3)
  - IMPULSIVE BEHAVIOUR [None]
  - MOOD SWINGS [None]
  - PHARMACEUTICAL PRODUCT COMPLAINT [None]
